FAERS Safety Report 4712456-5 (Version None)
Quarter: 2005Q3

REPORT INFORMATION
  Report Type: 
  Country: None (occurrence: None)
  Receive Date: 20050711
  Receipt Date: 20050628
  Transmission Date: 20060218
  Serious: Yes (Hospitalization, Disabling, Other)
  Sender: FDA-Public Use
  Company Number: 2005078249

PATIENT
  Age: 68 Year
  Sex: Female
  Weight: 73.9363 kg

DRUGS (3)
  1. BEXTRA [Suspect]
     Indication: JOINT SWELLING
     Dosage: ORAL
     Route: 048
  2. TARKA [Concomitant]
  3. DYAZIDE [Concomitant]

REACTIONS (5)
  - BLOOD PRESSURE FLUCTUATION [None]
  - CARDIOMEGALY [None]
  - HEART RATE DECREASED [None]
  - HEART RATE IRREGULAR [None]
  - HYPERTENSION [None]
